FAERS Safety Report 10634659 (Version 3)
Quarter: 2015Q1

REPORT INFORMATION
  Report Type: Spontaneous
  Country: US (occurrence: US)
  Receive Date: 20141205
  Receipt Date: 20150121
  Transmission Date: 20150720
  Serious: Yes (Other)
  Sender: FDA-Public Use
  Company Number: US-ASTELLAS-2014US016955

PATIENT
  Sex: Male

DRUGS (1)
  1. XTANDI [Suspect]
     Active Substance: ENZALUTAMIDE
     Indication: PROSTATE CANCER METASTATIC
     Route: 065
     Dates: start: 20131212

REACTIONS (9)
  - Arthralgia [Unknown]
  - Asthenia [Unknown]
  - Metastases to bone [Unknown]
  - Nausea [Unknown]
  - Haemoglobin decreased [None]
  - Paraesthesia [Unknown]
  - Malignant neoplasm progression [Unknown]
  - Atypical fracture [Unknown]
  - Gait disturbance [Unknown]
